FAERS Safety Report 22166325 (Version 1)
Quarter: 2023Q2

REPORT INFORMATION
  Report Type: Spontaneous
  Country: US (occurrence: US)
  Receive Date: 20230403
  Receipt Date: 20230403
  Transmission Date: 20230722
  Serious: Yes (Hospitalization, Other)
  Sender: FDA-Public Use
  Company Number: US-PFIZER INC-202300135901

PATIENT
  Age: 72 Year
  Sex: Female

DRUGS (2)
  1. BUTORPHANOL TARTRATE [Suspect]
     Active Substance: BUTORPHANOL TARTRATE
     Indication: Pain
     Dosage: 2 MG/ML AS NEEDED
     Dates: start: 1983
  2. BUTORPHANOL TARTRATE [Suspect]
     Active Substance: BUTORPHANOL TARTRATE
     Indication: Multiple injuries

REACTIONS (5)
  - Cerebrovascular accident [Unknown]
  - Cerebral disorder [Unknown]
  - International normalised ratio decreased [Unknown]
  - Gastric disorder [Unknown]
  - Hypokinesia [Unknown]

NARRATIVE: CASE EVENT DATE: 20221118
